FAERS Safety Report 23858094 (Version 1)
Quarter: 2024Q2

REPORT INFORMATION
  Report Type: Spontaneous
  Country: US (occurrence: None)
  Receive Date: 20240514
  Receipt Date: 20240514
  Transmission Date: 20240715
  Serious: Yes (Death)
  Sender: FDA-Public Use
  Company Number: None

PATIENT
  Age: 58 Year
  Sex: Female
  Weight: 49.9 kg

DRUGS (12)
  1. MAVENCLAD [Suspect]
     Active Substance: CLADRIBINE
     Indication: Multiple sclerosis
     Dosage: OTHER QUANTITY : 10 TABLETS;?OTHER FREQUENCY : 2 TABLETS DAILY;?
     Route: 048
     Dates: start: 20240314, end: 20240319
  2. ALBUTEROL SULFATE [Concomitant]
     Active Substance: ALBUTEROL SULFATE
  3. AMITRIPTYLINE [Concomitant]
  4. ATORVASTATIN [Concomitant]
  5. BACLOFEN [Concomitant]
  6. CALCITRIOL [Concomitant]
  7. FUROSEMIDE [Concomitant]
  8. LEVETIRACETAM [Concomitant]
  9. LOKELMA [Concomitant]
     Active Substance: SODIUM ZIRCONIUM CYCLOSILICATE
  10. METHOCARBAMOL [Concomitant]
  11. PANTOPRAZOLE [Concomitant]
     Active Substance: PANTOPRAZOLE
  12. ZONISAMIDE [Concomitant]
     Active Substance: ZONISAMIDE

REACTIONS (1)
  - Death [None]
